FAERS Safety Report 14720574 (Version 1)
Quarter: 2018Q2

REPORT INFORMATION
  Report Type: Spontaneous
  Country: US (occurrence: US)
  Receive Date: 20180405
  Receipt Date: 20180405
  Transmission Date: 20180711
  Serious: Yes (Hospitalization, Disabling, Other)
  Sender: FDA-Public Use
  Company Number: US-WEST-WARD PHARMACEUTICALS CORP.-US-H14001-18-02517

PATIENT
  Age: 78 Year
  Sex: Male

DRUGS (1)
  1. CAPECITABINE. [Suspect]
     Active Substance: CAPECITABINE
     Indication: OESOPHAGEAL ADENOCARCINOMA
     Route: 065

REACTIONS (5)
  - Septic embolus [Unknown]
  - Endocarditis bacterial [Recovered/Resolved]
  - Spinal cord infarction [Unknown]
  - Immunosuppression [Unknown]
  - Anterior spinal artery syndrome [Not Recovered/Not Resolved]
